FAERS Safety Report 8326326-7 (Version None)
Quarter: 2012Q2

REPORT INFORMATION
  Report Type: 
  Country: None (occurrence: None)
  Receive Date: 20120501
  Receipt Date: 20120424
  Transmission Date: 20120825
  Serious: Yes (Death)
  Sender: FDA-Public Use
  Company Number: US-ELI_LILLY_AND_COMPANY-US201203003543

PATIENT
  Sex: Female

DRUGS (1)
  1. EFFIENT [Suspect]
     Dosage: UNK, UNKNOWN
     Route: 065

REACTIONS (1)
  - THROMBOSIS IN DEVICE [None]
